FAERS Safety Report 24059083 (Version 1)
Quarter: 2024Q3

REPORT INFORMATION
  Report Type: Report from Study
  Country: US (occurrence: US)
  Receive Date: 20240708
  Receipt Date: 20240708
  Transmission Date: 20241016
  Serious: Yes (Other)
  Sender: ABBVIE
  Company Number: US-ABBVIE-5828552

PATIENT
  Age: 41 Year
  Sex: Male

DRUGS (2)
  1. HUMIRA [Suspect]
     Active Substance: ADALIMUMAB
     Indication: Colitis ulcerative
     Route: 058
     Dates: start: 20190907
  2. HUMIRA [Suspect]
     Active Substance: ADALIMUMAB
     Dosage: RESTARTED
     Route: 058

REACTIONS (8)
  - Haemoglobin abnormal [Unknown]
  - Gastrointestinal inflammation [Not Recovered/Not Resolved]
  - Chest discomfort [Unknown]
  - Haematochezia [Not Recovered/Not Resolved]
  - Limb discomfort [Unknown]
  - Asthenia [Unknown]
  - Dyspnoea [Unknown]
  - Malaise [Unknown]

NARRATIVE: CASE EVENT DATE: 20240701
